FAERS Safety Report 16790656 (Version 1)
Quarter: 2019Q3

REPORT INFORMATION
  Report Type: Spontaneous
  Country: US (occurrence: US)
  Receive Date: 20190910
  Receipt Date: 20190910
  Transmission Date: 20191005
  Serious: Yes (Other)
  Sender: FDA-Public Use
  Company Number: US-PFIZER INC-2019385488

PATIENT
  Age: 27 Year
  Sex: Male
  Weight: 65.77 kg

DRUGS (3)
  1. XANAX [Suspect]
     Active Substance: ALPRAZOLAM
     Dosage: UNK
  2. PROZAC [Suspect]
     Active Substance: FLUOXETINE HYDROCHLORIDE
     Dosage: UNK
  3. VENLAFAXINE HCL [Suspect]
     Active Substance: VENLAFAXINE HYDROCHLORIDE
     Dosage: 75 MG, 1X/DAY

REACTIONS (11)
  - Decreased appetite [Unknown]
  - Disturbance in attention [Unknown]
  - Emotional disorder [Unknown]
  - Nausea [Unknown]
  - Yawning [Unknown]
  - Irritability [Unknown]
  - Feeling abnormal [Not Recovered/Not Resolved]
  - Abnormal dreams [Unknown]
  - Somnolence [Unknown]
  - Suicidal ideation [Unknown]
  - Panic attack [Recovered/Resolved]

NARRATIVE: CASE EVENT DATE: 20190903
